FAERS Safety Report 14117061 (Version 1)
Quarter: 2017Q4

REPORT INFORMATION
  Report Type: Spontaneous
  Country: US (occurrence: US)
  Receive Date: 20171023
  Receipt Date: 20171023
  Transmission Date: 20180321
  Serious: No
  Sender: FDA-Public Use
  Company Number: US-PURDUE-USA-2017-0140805

PATIENT
  Sex: Female

DRUGS (1)
  1. OXYCONTIN [Suspect]
     Active Substance: OXYCODONE HYDROCHLORIDE
     Indication: PAIN
     Dosage: 20 MG, UNK
     Route: 065
     Dates: end: 20170531

REACTIONS (8)
  - Pain [Unknown]
  - Headache [Unknown]
  - Feeling of body temperature change [Unknown]
  - Chills [Unknown]
  - Tremor [Unknown]
  - Drug withdrawal syndrome [Unknown]
  - Hypophagia [Unknown]
  - Hyperhidrosis [Unknown]
